FAERS Safety Report 16598306 (Version 1)
Quarter: 2019Q3

REPORT INFORMATION
  Report Type: Spontaneous
  Country: US (occurrence: US)
  Receive Date: 20190719
  Receipt Date: 20190719
  Transmission Date: 20191004
  Serious: Yes (Hospitalization, Other)
  Sender: FDA-Public Use
  Company Number: US-BAYER-2019-128767

PATIENT
  Age: 10 Year
  Sex: Male

DRUGS (7)
  1. ORKAMBI [Suspect]
     Active Substance: IVACAFTOR\LUMACAFTOR
     Indication: CYSTIC FIBROSIS
     Dosage: UNK UNK, BID
     Dates: start: 20181113
  2. KITABIS PAK [Suspect]
     Active Substance: TOBRAMYCIN
     Indication: CYSTIC FIBROSIS
     Dosage: 5 MG, BID
     Route: 055
     Dates: start: 20181204
  3. CAYSTON [Suspect]
     Active Substance: AZTREONAM
  4. CREON [Concomitant]
     Active Substance: PANCRELIPASE AMYLASE\PANCRELIPASE LIPASE\PANCRELIPASE PROTEASE
  5. FLONASE ALLERGY RELIEF [Concomitant]
     Active Substance: FLUTICASONE PROPIONATE
  6. VITAMIN D [VITAMIN D NOS] [Concomitant]
     Active Substance: VITAMIN D NOS
  7. CIPROFLOXACIN. [Suspect]
     Active Substance: CIPROFLOXACIN
     Dosage: UNK

REACTIONS (5)
  - Pyrexia [Recovered/Resolved]
  - Rash [None]
  - Drug hypersensitivity [None]
  - Viral infection [None]
  - Urticaria [Recovered/Resolved]

NARRATIVE: CASE EVENT DATE: 20190701
